FAERS Safety Report 16645970 (Version 1)
Quarter: 2019Q3

REPORT INFORMATION
  Report Type: Spontaneous
  Country: US (occurrence: US)
  Receive Date: 20190730
  Receipt Date: 20190730
  Transmission Date: 20191004
  Serious: Yes (Other)
  Sender: FDA-Public Use
  Company Number: US-AMGEN-USASP2019119029

PATIENT

DRUGS (1)
  1. CINACALCET HCL [Suspect]
     Active Substance: CINACALCET HYDROCHLORIDE
     Indication: PRODUCT USED FOR UNKNOWN INDICATION
     Dosage: UNK MILLIGRAM, QD
     Route: 065

REACTIONS (9)
  - Osteomyelitis [Unknown]
  - Osteoarthritis [Unknown]
  - Osteodystrophy [Unknown]
  - Bone disorder [Unknown]
  - Osteopenia [Unknown]
  - Osteoporosis [Unknown]
  - Osteosclerosis [Unknown]
  - Off label use [Unknown]
  - Fracture [Unknown]
